FAERS Safety Report 23728257 (Version 1)
Quarter: 2024Q2

REPORT INFORMATION
  Report Type: Spontaneous
  Country: US (occurrence: US)
  Receive Date: 20240410
  Receipt Date: 20240410
  Transmission Date: 20240716
  Serious: No
  Sender: FDA-Public Use
  Company Number: US-BRISTOL-MYERS SQUIBB COMPANY-2024-056876

PATIENT
  Age: 71 Year
  Sex: Female
  Weight: 91.63 kg

DRUGS (1)
  1. REVLIMID [Suspect]
     Active Substance: LENALIDOMIDE
     Indication: Plasma cell myeloma
     Route: 048
     Dates: start: 20240315, end: 20240404

REACTIONS (2)
  - Insomnia [Unknown]
  - Dyspnoea exertional [Unknown]
